FAERS Safety Report 7494586-0 (Version None)
Quarter: 2011Q2

REPORT INFORMATION
  Report Type: 
  Country: None (occurrence: None)
  Receive Date: 20110520
  Receipt Date: 20110510
  Transmission Date: 20111010
  Serious: Yes (Other)
  Sender: FDA-Public Use
  Company Number: PHHY2011AR39870

PATIENT
  Sex: Male

DRUGS (1)
  1. EXFORGE [Suspect]
     Indication: BLOOD PRESSURE
     Dosage: 160 MG OF VALS AND 5 MG OF AMLO
     Dates: start: 20100601, end: 20100701

REACTIONS (2)
  - ERYSIPELAS [None]
  - SKIN LESION [None]
